FAERS Safety Report 8923891 (Version 3)
Quarter: 2012Q4

REPORT INFORMATION
  Report Type: 
  Country: FR (occurrence: JP)
  Receive Date: 20121126
  Receipt Date: 20121227
  Transmission Date: 20130627
  Serious: Yes (Other)
  Sender: FDA-Public Use
  Company Number: JP-BAYER-2012-123036

PATIENT
  Age: 61 Year
  Sex: Male

DRUGS (25)
  1. TAMOXIFEN [Suspect]
     Indication: MALIGNANT MELANOMA STAGE IV
     Dosage: UNK
     Dates: start: 200711
  2. TAMOXIFEN [Suspect]
     Indication: BONE METASTASES
  3. TAMOXIFEN [Suspect]
     Indication: LUNG METASTASES
  4. TAMOXIFEN [Suspect]
     Indication: LYMPH NODE METASTASES
  5. TAMOXIFEN [Suspect]
     Indication: LIVER METASTASES
  6. DACARBAZINE [Suspect]
     Indication: MALIGNANT MELANOMA STAGE IV
     Dosage: UNK
     Dates: start: 200711
  7. DACARBAZINE [Suspect]
     Indication: BONE METASTASES
  8. DACARBAZINE [Suspect]
     Indication: LUNG METASTASES
  9. DACARBAZINE [Suspect]
     Indication: LYMPH NODE METASTASES
  10. DACARBAZINE [Suspect]
     Indication: LIVER METASTASES
  11. CISPLATIN [Suspect]
     Indication: MALIGNANT MELANOMA STAGE IV
     Dosage: UNK
     Dates: start: 200711
  12. CISPLATIN [Suspect]
     Indication: BONE METASTASES
  13. CISPLATIN [Suspect]
     Indication: LUNG METASTASES
  14. CISPLATIN [Suspect]
     Indication: LYMPH NODE METASTASES
  15. CISPLATIN [Suspect]
     Indication: LIVER METASTASES
  16. NIMUSTINE [Suspect]
     Indication: MALIGNANT MELANOMA STAGE IV
     Dosage: UNK
     Dates: start: 200711
  17. NIMUSTINE [Suspect]
     Indication: BONE METASTASES
  18. NIMUSTINE [Suspect]
     Indication: LUNG METASTASES
  19. NIMUSTINE [Suspect]
     Indication: LYMPH NODE METASTASES
  20. NIMUSTINE [Suspect]
     Indication: LIVER METASTASES
  21. FERON [Suspect]
     Indication: MALIGNANT MELANOMA STAGE IV
     Dosage: UNK
     Dates: start: 200711
  22. FERON [Suspect]
     Indication: BONE METASTASES
  23. FERON [Suspect]
     Indication: LUNG METASTASES
  24. FERON [Suspect]
     Indication: LYMPH NODE METASTASES
  25. FERON [Suspect]
     Indication: LIVER METASTASES

REACTIONS (4)
  - Pulmonary artery thrombosis [None]
  - Peripheral artery thrombosis [None]
  - Fibrin D dimer increased [None]
  - Dyspnoea [None]
